FAERS Safety Report 5105696-7 (Version None)
Quarter: 2006Q3

REPORT INFORMATION
  Report Type: 
  Country: None (occurrence: None)
  Receive Date: 20060915
  Receipt Date: 20060530
  Transmission Date: 20061208
  Serious: Yes (Life-Threatening, Hospitalization, Disabling, Other)
  Sender: FDA-Public Use
  Company Number: US-MERCK-0605USA05182

PATIENT
  Age: 80 Year
  Sex: Female
  Weight: 60 kg

DRUGS (1)
  1. FOSAMAX [Suspect]
     Indication: OSTEOPOROSIS
     Route: 048
     Dates: start: 20040302, end: 20050406

REACTIONS (2)
  - OESOPHAGEAL PERFORATION [None]
  - PNEUMOTHORAX [None]
